FAERS Safety Report 7914423-7 (Version None)
Quarter: 2011Q4

REPORT INFORMATION
  Report Type: 
  Country: None (occurrence: None)
  Receive Date: 20111110
  Receipt Date: 20111031
  Transmission Date: 20120403
  Serious: Yes (Death)
  Sender: FDA-Public Use
  Company Number: 2011MA016014

PATIENT
  Age: 25 Year
  Sex: Female

DRUGS (4)
  1. ANTIBIOTIC [Concomitant]
  2. FEVERALL [Suspect]
     Indication: NASOPHARYNGITIS
  3. LEMSIP (NO PREF. NAME) [Suspect]
  4. COUGH MEDICINE (UNSPECIFIED) (NO PREF. NAME) [Suspect]

REACTIONS (3)
  - OVERDOSE [None]
  - HEPATIC FAILURE [None]
  - HEPATIC NECROSIS [None]
